FAERS Safety Report 4404582-5 (Version None)
Quarter: 2004Q3

REPORT INFORMATION
  Report Type: 
  Country: None (occurrence: None)
  Receive Date: 20040720
  Receipt Date: 20040708
  Transmission Date: 20050211
  Serious: Yes (Death)
  Sender: FDA-Public Use
  Company Number: 04P-163-0255218-00

PATIENT
  Age: 41 Year
  Sex: Male
  Weight: 97.977 kg

DRUGS (4)
  1. DEPAKOTE ER [Suspect]
     Indication: SCHIZOPHRENIA
     Dosage: PER ORAL
     Route: 048
     Dates: start: 20040303, end: 20040326
  2. ALPRAZOLAM [Concomitant]
  3. VICODIN [Concomitant]
  4. OXYCODONE HCL [Concomitant]

REACTIONS (10)
  - ACCIDENTAL OVERDOSE [None]
  - ANXIETY [None]
  - CARDIOMEGALY [None]
  - DELIRIUM [None]
  - LETHARGY [None]
  - MENTAL STATUS CHANGES [None]
  - PULMONARY CONGESTION [None]
  - PULMONARY OEDEMA [None]
  - SOMNOLENCE [None]
  - VOMITING [None]
